FAERS Safety Report 17330720 (Version 1)
Quarter: 2020Q1

REPORT INFORMATION
  Report Type: Spontaneous
  Country: FR (occurrence: FR)
  Receive Date: 20200128
  Receipt Date: 20200128
  Transmission Date: 20200409
  Serious: Yes (Death, Other)
  Sender: FDA-Public Use
  Company Number: FR-MYLANLABS-2020M1009765

PATIENT
  Age: 88 Year
  Sex: Female
  Weight: 50 kg

DRUGS (12)
  1. MACROGOL 4000 [Concomitant]
     Active Substance: POLYETHYLENE GLYCOL 4000
     Indication: PRODUCT USED FOR UNKNOWN INDICATION
     Dosage: 20 GRAM, QD
     Route: 048
     Dates: start: 200111, end: 20021004
  2. DOMPERIDONE [Concomitant]
     Active Substance: DOMPERIDONE
     Indication: PRODUCT USED FOR UNKNOWN INDICATION
     Dosage: 30 MILLIGRAM, QD
     Route: 048
     Dates: start: 200111, end: 20021004
  3. ALDACTAZINE [Concomitant]
     Active Substance: ALTHIAZIDE\SPIRONOLACTONE
     Indication: PRODUCT USED FOR UNKNOWN INDICATION
     Dosage: 1 DOSAGE FORM, QD
     Route: 048
     Dates: start: 200111, end: 20021004
  4. CEFTRIAXONE. [Suspect]
     Active Substance: CEFTRIAXONE
     Indication: ERYSIPELAS
     Dosage: 1 GRAM, QD
     Route: 042
     Dates: start: 20021004, end: 20021011
  5. OFLOXACIN. [Suspect]
     Active Substance: OFLOXACIN
     Indication: DELIRIUM FEBRILE
     Dosage: 400 MILLIGRAM, QD
     Route: 042
     Dates: start: 20021004, end: 20021011
  6. OFLOXACIN. [Suspect]
     Active Substance: OFLOXACIN
     Indication: ERYSIPELAS
  7. LOXAPAC                            /00401801/ [Suspect]
     Active Substance: LOXAPINE
     Indication: CONFUSIONAL STATE
     Dosage: UNK (UNKNOWN)
     Route: 048
     Dates: start: 20021004, end: 20021008
  8. ACICLOVIR [Suspect]
     Active Substance: ACYCLOVIR
     Indication: HERPES ZOSTER CUTANEOUS DISSEMINATED
     Dosage: 2 GRAM, QD
     Route: 065
     Dates: start: 20021007, end: 20021009
  9. CEFTRIAXONE. [Suspect]
     Active Substance: CEFTRIAXONE
     Indication: DELIRIUM FEBRILE
  10. OMEPRAZOLE. [Concomitant]
     Active Substance: OMEPRAZOLE
     Indication: PRODUCT USED FOR UNKNOWN INDICATION
     Dosage: 10 MILLIGRAM, QD
     Route: 048
     Dates: start: 200111, end: 20021004
  11. LOXAPAC                            /00401801/ [Suspect]
     Active Substance: LOXAPINE
     Indication: PSYCHOMOTOR HYPERACTIVITY
     Dosage: UNK (UNKNOWN)
     Route: 048
     Dates: start: 20021017, end: 20021021
  12. VALACICLOVIR [Suspect]
     Active Substance: VALACYCLOVIR HYDROCHLORIDE
     Indication: HERPES ZOSTER CUTANEOUS DISSEMINATED
     Dosage: 1000 MILLIGRAM, QD (PER OS)
     Route: 048
     Dates: start: 20021010, end: 20021020

REACTIONS (5)
  - Agranulocytosis [Recovering/Resolving]
  - Leukopenia [Recovering/Resolving]
  - Septic shock [Fatal]
  - Systemic inflammatory response syndrome [Unknown]
  - Herpes zoster cutaneous disseminated [Recovering/Resolving]

NARRATIVE: CASE EVENT DATE: 20021010
